FAERS Safety Report 16414464 (Version 1)
Quarter: 2019Q2

REPORT INFORMATION
  Report Type: Spontaneous
  Country: US (occurrence: US)
  Receive Date: 20190611
  Receipt Date: 20190611
  Transmission Date: 20190711
  Serious: No
  Sender: FDA-Public Use
  Company Number: US-TEVA-2019-US-1054469

PATIENT
  Age: 62 Year
  Sex: Male

DRUGS (1)
  1. FEXOFENADINE [Suspect]
     Active Substance: FEXOFENADINE\FEXOFENADINE HYDROCHLORIDE
     Indication: MULTIPLE ALLERGIES
     Dosage: 180 MILLIGRAM DAILY;
     Route: 048
     Dates: start: 20190514, end: 20190514

REACTIONS (2)
  - Therapeutic product effect delayed [Unknown]
  - Expired product administered [Unknown]

NARRATIVE: CASE EVENT DATE: 20190514
